FAERS Safety Report 10574685 (Version 6)
Quarter: 2018Q2

REPORT INFORMATION
  Report Type: Spontaneous
  Country: LB (occurrence: LB)
  Receive Date: 20141110
  Receipt Date: 20180629
  Transmission Date: 20180711
  Serious: Yes (Other)
  Sender: FDA-Public Use
  Company Number: LB-PFIZER INC-2014296128

PATIENT
  Age: 26 Year
  Sex: Female

DRUGS (3)
  1. NICOTINE. [Concomitant]
     Active Substance: NICOTINE
  2. FLUOXETINE [Suspect]
     Active Substance: FLUOXETINE HYDROCHLORIDE
     Indication: DEPRESSION
     Dosage: 20 MG, DAILY
  3. PREGABALIN. [Suspect]
     Active Substance: PREGABALIN
     Dosage: 1500-2400 MG, DAILY
     Route: 048

REACTIONS (13)
  - Bipolar disorder [Unknown]
  - Suicidal ideation [Recovered/Resolved]
  - Palpitations [Recovered/Resolved]
  - Intentional overdose [Recovered/Resolved]
  - Headache [Recovered/Resolved]
  - Disturbance in attention [Recovered/Resolved]
  - Feeling of relaxation [Recovered/Resolved]
  - Withdrawal syndrome [Recovered/Resolved]
  - Depressed mood [Recovered/Resolved]
  - Drug dependence [Recovered/Resolved]
  - Drug abuse [Recovered/Resolved]
  - Disease progression [Recovered/Resolved]
  - Anxiety [Recovered/Resolved]
